FAERS Safety Report 7058887-2 (Version None)
Quarter: 2010Q4

REPORT INFORMATION
  Report Type: 
  Country: None (occurrence: None)
  Receive Date: 20101022
  Receipt Date: 20101008
  Transmission Date: 20110411
  Serious: Yes (Other)
  Sender: FDA-Public Use
  Company Number: HU-AMGEN GMBH-KDL442629

PATIENT

DRUGS (5)
  1. ARANESP [Suspect]
     Indication: ANAEMIA OF MALIGNANT DISEASE
     Dosage: 500 A?G, Q3WK
     Route: 058
     Dates: start: 20100819, end: 20100929
  2. PACLITAXEL [Concomitant]
     Dosage: UNK UNK, Q3WK
     Route: 042
     Dates: start: 20100628
  3. CARBOPLATIN [Concomitant]
     Dosage: UNK UNK, Q3WK
     Route: 042
     Dates: start: 20100628
  4. METHYLPREDNISOLONE SODIUM SUCCINATE [Concomitant]
     Dosage: UNK UNK, Q3WK
     Route: 042
     Dates: start: 20100628
  5. CETIRIZINE HCL [Concomitant]
     Dosage: UNK UNK, Q3WK
     Route: 048
     Dates: start: 20100628

REACTIONS (5)
  - ARTHRALGIA [None]
  - BURNING SENSATION [None]
  - HYPOAESTHESIA [None]
  - INJECTION SITE PAIN [None]
  - MYALGIA [None]
